FAERS Safety Report 24269657 (Version 1)
Quarter: 2024Q3

REPORT INFORMATION
  Report Type: Report from Study
  Country: US (occurrence: US)
  Receive Date: 20240830
  Receipt Date: 20240830
  Transmission Date: 20241017
  Serious: No
  Sender: BIOVITRUM
  Company Number: US-BIOVITRUM-2024-US-011404

PATIENT
  Sex: Male

DRUGS (4)
  1. SYNAGIS [Suspect]
     Active Substance: PALIVIZUMAB
     Indication: Bronchopulmonary dysplasia
     Dosage: 100 MG/ML: INJECT 15MGPER KG IN THE MUSCLEONCE PER MONTH
     Route: 030
     Dates: start: 20240630
  2. ALBUTEROL AER HFA [Concomitant]
     Indication: Product used for unknown indication
  3. IRON SLOW [Concomitant]
     Indication: Product used for unknown indication
  4. PULMICORT SUS [Concomitant]
     Indication: Product used for unknown indication
     Dosage: 1 MG/2ML

REACTIONS (2)
  - Adverse drug reaction [Not Recovered/Not Resolved]
  - Body temperature decreased [Not Recovered/Not Resolved]
